FAERS Safety Report 4767255-5 (Version None)
Quarter: 2005Q3

REPORT INFORMATION
  Report Type: 
  Country: None (occurrence: None)
  Receive Date: 20050913
  Receipt Date: 20050906
  Transmission Date: 20060218
  Serious: Yes (Hospitalization)
  Sender: FDA-Public Use
  Company Number: PHBS2005JP13135

PATIENT
  Age: 70 Year
  Sex: Male

DRUGS (5)
  1. DIOVAN [Suspect]
     Indication: HYPERTENSION
     Dosage: 80 MG, UNK
     Route: 048
     Dates: start: 20031101, end: 20050903
  2. FOIPAN [Suspect]
     Dosage: 6 DF, UNK
     Route: 048
     Dates: start: 20050701
  3. NORVASC [Concomitant]
     Dosage: 5 MG, UNK
     Route: 048
     Dates: start: 19950101
  4. AMARYL [Concomitant]
     Route: 048
  5. GEFARNATE [Concomitant]
     Dosage: 300 MG, UNK
     Route: 048

REACTIONS (2)
  - DYSPNOEA [None]
  - PHARYNGEAL OEDEMA [None]
